FAERS Safety Report 6136443-8 (Version None)
Quarter: 2009Q1

REPORT INFORMATION
  Report Type: 
  Country: None (occurrence: None)
  Receive Date: 20090325
  Receipt Date: 20090310
  Transmission Date: 20090719
  Serious: No
  Sender: FDA-Public Use
  Company Number: 8043853

PATIENT
  Age: 87 Year
  Sex: Male
  Weight: 72.5 kg

DRUGS (8)
  1. KEPPRA [Suspect]
     Indication: CONVULSION
     Dosage: NI /D; PO
     Route: 048
     Dates: start: 20080701, end: 20080801
  2. KEPPRA [Suspect]
     Indication: CONVULSION
     Dosage: 250 MG 2/D; PO
     Route: 048
     Dates: start: 20090201
  3. SINEMET [Concomitant]
  4. COMTAN [Concomitant]
  5. AMANTADINE HCL [Concomitant]
  6. LOVASTATIN [Concomitant]
  7. DOXAZOSIN MESYLATE [Concomitant]
  8. REQUIP [Concomitant]

REACTIONS (1)
  - SOMNOLENCE [None]
